FAERS Safety Report 5682583-7 (Version None)
Quarter: 2008Q1

REPORT INFORMATION
  Report Type: 
  Country: None (occurrence: None)
  Receive Date: 20080327
  Receipt Date: 20080222
  Transmission Date: 20080703
  Serious: No
  Sender: FDA-Public Use
  Company Number: US-BRISTOL-MYERS SQUIBB COMPANY-14020580

PATIENT
  Age: 38 Year
  Sex: Female

DRUGS (6)
  1. ORENCIA [Suspect]
     Indication: SYSTEMIC LUPUS ERYTHEMATOSUS
     Dosage: 540MG OF 750MG
     Route: 042
  2. ADVAIR DISKUS 100/50 [Concomitant]
  3. ALLEGRA [Concomitant]
  4. ALBUTEROL [Concomitant]
  5. COMBIVENT [Concomitant]
  6. PROPRANOLOL HCL [Concomitant]

REACTIONS (3)
  - FEELING ABNORMAL [None]
  - OFF LABEL USE [None]
  - PHARYNGOLARYNGEAL PAIN [None]
